FAERS Safety Report 14511832 (Version 1)
Quarter: 2018Q1

REPORT INFORMATION
  Report Type: Spontaneous
  Country: US (occurrence: US)
  Receive Date: 20180208
  Receipt Date: 20180208
  Transmission Date: 20180509
  Serious: No
  Sender: FDA-Public Use
  Company Number: None

PATIENT
  Age: 38 Year
  Sex: Female

DRUGS (1)
  1. HARVONI [Suspect]
     Active Substance: LEDIPASVIR\SOFOSBUVIR
     Dosage: 1/19/2018 STILL ON 2/8/2018
     Route: 048
     Dates: start: 20180119

REACTIONS (2)
  - Dysgeusia [None]
  - Diarrhoea [None]

NARRATIVE: CASE EVENT DATE: 20180119
